FAERS Safety Report 12368913 (Version 11)
Quarter: 2017Q4

REPORT INFORMATION
  Report Type: Report from Study
  Country: None (occurrence: NL)
  Receive Date: 20160513
  Receipt Date: 20171229
  Transmission Date: 20180320
  Serious: Yes (Life-Threatening, Hospitalization, Disabling, Other)
  Sender: FDA-Public Use
  Company Number: NL-ABBVIE-16P-114-1626078-00

PATIENT
  Age: 68 Year
  Sex: Female

DRUGS (1)
  1. DUODOPA [Suspect]
     Active Substance: CARBIDOPA\LEVODOPA
     Indication: PARKINSON^S DISEASE
     Dosage: MD 12; CONT DOSE 5.6; ED 3; ND 3.5
     Route: 050
     Dates: start: 20160307

REACTIONS (29)
  - Loss of personal independence in daily activities [Recovering/Resolving]
  - Dysphonia [Not Recovered/Not Resolved]
  - Fatigue [Not Recovered/Not Resolved]
  - Sensory loss [Not Recovered/Not Resolved]
  - Dysphagia [Not Recovered/Not Resolved]
  - Fall [Recovered/Resolved]
  - Device dislocation [Not Recovered/Not Resolved]
  - Stoma site discharge [Not Recovered/Not Resolved]
  - Stoma site irritation [Not Recovered/Not Resolved]
  - Stoma site erythema [Not Recovered/Not Resolved]
  - General physical health deterioration [Not Recovered/Not Resolved]
  - Muscular weakness [Not Recovered/Not Resolved]
  - Amnesia [Recovered/Resolved]
  - Speech disorder [Recovered/Resolved]
  - Fibroma [Not Recovered/Not Resolved]
  - Speech disorder [Not Recovered/Not Resolved]
  - Stoma site reaction [Not Recovered/Not Resolved]
  - Dysstasia [Not Recovered/Not Resolved]
  - Stoma site discomfort [Not Recovered/Not Resolved]
  - Hypokinesia [Recovering/Resolving]
  - Incorrect route of drug administration [Recovered/Resolved]
  - Device dislocation [Unknown]
  - Alopecia [Recovering/Resolving]
  - Gait disturbance [Not Recovered/Not Resolved]
  - On and off phenomenon [Not Recovered/Not Resolved]
  - Salivary hypersecretion [Not Recovered/Not Resolved]
  - Terminal state [Recovered/Resolved]
  - Cerebral infarction [Recovering/Resolving]
  - Bedridden [Recovered/Resolved]

NARRATIVE: CASE EVENT DATE: 20160602
